FAERS Safety Report 18392916 (Version 1)
Quarter: 2020Q4

REPORT INFORMATION
  Report Type: Spontaneous
  Country: US (occurrence: US)
  Receive Date: 20201016
  Receipt Date: 20201016
  Transmission Date: 20210114
  Serious: No
  Sender: FDA-Public Use
  Company Number: US-BAYER-2020-220924

PATIENT
  Sex: Male

DRUGS (1)
  1. ADEMPAS [Suspect]
     Active Substance: RIOCIGUAT
     Dosage: 2.5 MG, ONCE
     Dates: start: 20201009, end: 20201009

REACTIONS (2)
  - Exposure via ingestion [None]
  - Accidental exposure to product by child [None]

NARRATIVE: CASE EVENT DATE: 20201009
